FAERS Safety Report 6030354-4 (Version None)
Quarter: 2009Q1

REPORT INFORMATION
  Report Type: 
  Country: None (occurrence: None)
  Receive Date: 20090107
  Receipt Date: 20080729
  Transmission Date: 20090719
  Serious: No
  Sender: FDA-Public Use
  Company Number: US-BAYER-200813235BCC

PATIENT
  Age: 27 Year
  Sex: Female
  Weight: 66 kg

DRUGS (1)
  1. MIDOL [Suspect]
     Indication: DYSMENORRHOEA
     Dosage: AS USED: 220-440 MG  UNIT DOSE: 220 MG
     Route: 048
     Dates: start: 20080728

REACTIONS (3)
  - LIP SWELLING [None]
  - ORAL PRURITUS [None]
  - PARAESTHESIA ORAL [None]
